FAERS Safety Report 14874774 (Version 2)
Quarter: 2018Q2

REPORT INFORMATION
  Report Type: Spontaneous
  Country: PL (occurrence: PL)
  Receive Date: 20180510
  Receipt Date: 20180523
  Transmission Date: 20180711
  Serious: Yes (Hospitalization)
  Sender: FDA-Public Use
  Company Number: PL-PFIZER INC-2018187416

PATIENT
  Age: 43 Year
  Sex: Female
  Weight: 82 kg

DRUGS (6)
  1. HERCEPTIN [Suspect]
     Active Substance: TRASTUZUMAB
     Dosage: UNK; LOADING DOSE
     Dates: start: 20180216
  2. DOCETAXEL. [Suspect]
     Active Substance: DOCETAXEL
     Dosage: UNK; LOADING DOSE
     Dates: start: 20180216
  3. PERJETA [Suspect]
     Active Substance: PERTUZUMAB
     Dosage: 420 MG, UNK
     Dates: start: 201803
  4. DOCETAXEL. [Suspect]
     Active Substance: DOCETAXEL
     Dosage: 75 MG/M2, UNK
     Dates: start: 201803
  5. PERJETA [Suspect]
     Active Substance: PERTUZUMAB
     Dosage: UNK; LOADING DOSE
     Dates: start: 20180216
  6. HERCEPTIN [Suspect]
     Active Substance: TRASTUZUMAB
     Dosage: 6 MG/KG, UNK
     Dates: start: 201803

REACTIONS (2)
  - Extravasation [Recovered/Resolved]
  - Febrile neutropenia [Recovering/Resolving]

NARRATIVE: CASE EVENT DATE: 201803
